FAERS Safety Report 23444752 (Version 3)
Quarter: 2024Q2

REPORT INFORMATION
  Report Type: Report from Study
  Country: US (occurrence: US)
  Receive Date: 20240125
  Receipt Date: 20240404
  Transmission Date: 20240716
  Serious: Yes (Death)
  Sender: FDA-Public Use
  Company Number: US-BAUSCH-BL-2024-001131

PATIENT
  Age: 69 Year
  Sex: Male
  Weight: 72.64 kg

DRUGS (1)
  1. XIFAXAN [Suspect]
     Active Substance: RIFAXIMIN
     Indication: Hepatic cirrhosis
     Route: 065
     Dates: start: 202305, end: 20240119

REACTIONS (3)
  - Hepatic cancer [Fatal]
  - Condition aggravated [Fatal]
  - Hepatic cirrhosis [Fatal]
